FAERS Safety Report 9581949 (Version 1)
Quarter: 2013Q4

REPORT INFORMATION
  Report Type: Report from Study
  Country: RO (occurrence: RO)
  Receive Date: 20131002
  Receipt Date: 20131002
  Transmission Date: 20140711
  Serious: Yes (Other)
  Sender: FDA-Public Use
  Company Number: RO-ABBVIE-13P-135-1151828-00

PATIENT
  Age: 61 Year
  Sex: Female
  Weight: 104 kg

DRUGS (9)
  1. ZEMPLAR [Suspect]
     Indication: HYPERPARATHYROIDISM SECONDARY
     Route: 048
     Dates: start: 20110727
  2. ZEMPLAR [Suspect]
     Route: 048
  3. CANDESARTANUM [Concomitant]
     Indication: PRODUCT USED FOR UNKNOWN INDICATION
     Dates: start: 2011
  4. CARVEDILOLUM [Concomitant]
     Indication: PRODUCT USED FOR UNKNOWN INDICATION
  5. NIFEDIPINUM [Concomitant]
     Indication: PRODUCT USED FOR UNKNOWN INDICATION
  6. FUROSEMIDUM [Concomitant]
     Indication: PRODUCT USED FOR UNKNOWN INDICATION
  7. DIGOXINUM [Concomitant]
     Indication: PRODUCT USED FOR UNKNOWN INDICATION
  8. MOXONIDINUM [Concomitant]
     Indication: PRODUCT USED FOR UNKNOWN INDICATION
  9. ACENOCUMAROLUM [Concomitant]
     Indication: PRODUCT USED FOR UNKNOWN INDICATION

REACTIONS (2)
  - Haemodialysis [Unknown]
  - Renal failure chronic [Unknown]
